FAERS Safety Report 14932892 (Version 1)
Quarter: 2018Q2

REPORT INFORMATION
  Report Type: Spontaneous
  Country: FR (occurrence: FR)
  Receive Date: 20180524
  Receipt Date: 20180524
  Transmission Date: 20180711
  Serious: Yes (Other)
  Sender: FDA-Public Use
  Company Number: FR-MERCK KGAA-2048391

PATIENT
  Age: 71 Year
  Sex: Female

DRUGS (1)
  1. NOVOTHYROX [Suspect]
     Active Substance: LEVOTHYROXINE SODIUM
     Indication: PRODUCT USED FOR UNKNOWN INDICATION
     Dates: start: 2017, end: 20180115

REACTIONS (26)
  - Abdominal distension [None]
  - Antisocial behaviour [None]
  - Weight increased [None]
  - Irritability [None]
  - Anxiety [None]
  - Hypertension [None]
  - Nervousness [None]
  - Asthenia [None]
  - Depression [None]
  - Depressed mood [None]
  - Hot flush [None]
  - Mood swings [None]
  - Headache [None]
  - Arrhythmia [None]
  - Amnesia [None]
  - Musculoskeletal stiffness [None]
  - Trichorrhexis [None]
  - Decreased interest [None]
  - Sleep disorder [None]
  - Blood thyroid stimulating hormone increased [None]
  - Arthralgia [None]
  - Stress [None]
  - Fatigue [None]
  - Constipation [None]
  - Mood altered [None]
  - Nausea [None]

NARRATIVE: CASE EVENT DATE: 2017
